FAERS Safety Report 6762496-X (Version None)
Quarter: 2010Q2

REPORT INFORMATION
  Report Type: 
  Country: None (occurrence: None)
  Receive Date: 20100609
  Receipt Date: 20100603
  Transmission Date: 20101027
  Serious: Yes (Death, Life-Threatening)
  Sender: FDA-Public Use
  Company Number: JP-JNJFOC-20100602618

PATIENT
  Sex: Male

DRUGS (13)
  1. LOPEMIN [Suspect]
     Indication: DIARRHOEA
     Route: 048
  2. CAMPTOSAR [Suspect]
     Indication: SMALL CELL LUNG CANCER STAGE UNSPECIFIED
     Route: 041
  3. CISPLATIN [Concomitant]
     Route: 065
  4. ZOFRAN [Concomitant]
     Route: 065
  5. DECADRON [Concomitant]
     Route: 065
  6. ALBUMIN TANNATE [Concomitant]
     Indication: DIARRHOEA
     Route: 065
  7. ALL OTHER THERAPEUTIC PRODUCT [Concomitant]
     Indication: DIARRHOEA
     Route: 065
  8. BIFIDOBACTERIUM [Concomitant]
     Indication: DIARRHOEA
     Route: 065
  9. DINOPROST [Concomitant]
     Indication: ILEUS PARALYTIC
     Route: 065
  10. PANTHENOL [Concomitant]
     Indication: ILEUS PARALYTIC
     Route: 065
  11. PRIMPERAN TAB [Concomitant]
     Route: 065
  12. MANNITOL [Concomitant]
     Route: 065
  13. LASIX [Concomitant]
     Route: 065

REACTIONS (8)
  - ALTERED STATE OF CONSCIOUSNESS [None]
  - DRUG INEFFECTIVE [None]
  - ILEUS PARALYTIC [None]
  - LEUKOPENIA [None]
  - NEUTROPENIA [None]
  - PYREXIA [None]
  - SEPSIS [None]
  - THROMBOCYTOPENIA [None]
